FAERS Safety Report 7740067-6 (Version None)
Quarter: 2011Q3

REPORT INFORMATION
  Report Type: 
  Country: None (occurrence: None)
  Receive Date: 20110909
  Receipt Date: 20110830
  Transmission Date: 20111222
  Serious: Yes (Hospitalization)
  Sender: FDA-Public Use
  Company Number: CA-ROCHE-764891

PATIENT
  Sex: Male
  Weight: 76.2 kg

DRUGS (8)
  1. TYLENOL W/ CODEINE NO. 3 [Concomitant]
     Dosage: PRN (AS NECESSARY)
  2. RANITIDINE [Concomitant]
  3. ACTONEL [Concomitant]
  4. AVALIDE [Concomitant]
  5. PREDNISONE [Concomitant]
  6. CELEXA [Concomitant]
  7. TOCILIZUMAB [Suspect]
     Indication: RHEUMATOID ARTHRITIS
     Dosage: FORM: INFUSION
     Route: 042
     Dates: start: 20101103, end: 20110623
  8. LEFLUNOMIDE [Concomitant]

REACTIONS (2)
  - TENDON OPERATION [None]
  - INFECTION [None]
